FAERS Safety Report 8155001-7 (Version None)
Quarter: 2012Q1

REPORT INFORMATION
  Report Type: 
  Country: None (occurrence: None)
  Receive Date: 20120221
  Receipt Date: 20120220
  Transmission Date: 20120608
  Serious: Yes (Life-Threatening, Other)
  Sender: FDA-Public Use
  Company Number: PHHY2009CA09270

PATIENT
  Sex: Female

DRUGS (3)
  1. ZOLEDRONOC ACID [Suspect]
     Indication: OSTEOPOROSIS
     Dosage: UNK UKN, UNK
     Route: 042
     Dates: start: 20090306
  2. ZOLEDRONOC ACID [Suspect]
     Dosage: UNK UKN, UNK
     Route: 042
     Dates: start: 20100311
  3. ZOLEDRONOC ACID [Suspect]
     Dosage: UNK UKN, UNK
     Route: 042
     Dates: start: 20110308

REACTIONS (13)
  - BONE PAIN [None]
  - INTERVERTEBRAL DISC COMPRESSION [None]
  - ARTHRITIS [None]
  - APPARENT LIFE THREATENING EVENT [None]
  - PYREXIA [None]
  - FATIGUE [None]
  - BACK PAIN [None]
  - DIZZINESS [None]
  - CHILLS [None]
  - MYOCARDIAL INFARCTION [None]
  - FALL [None]
  - TREMOR [None]
  - HEADACHE [None]
